FAERS Safety Report 20600755 (Version 3)
Quarter: 2022Q2

REPORT INFORMATION
  Report Type: Spontaneous
  Country: JP (occurrence: JP)
  Receive Date: 20220316
  Receipt Date: 20220617
  Transmission Date: 20220721
  Serious: Yes (Other)
  Sender: FDA-Public Use
  Company Number: JP-JNJFOC-20220327598

PATIENT
  Age: 64 Year
  Sex: Female

DRUGS (2)
  1. SIMPONI [Suspect]
     Active Substance: GOLIMUMAB
     Indication: Rheumatoid arthritis
     Route: 058
  2. METHOTREXATE [Suspect]
     Active Substance: METHOTREXATE
     Indication: Rheumatoid arthritis
     Dosage: DOSE UNKNOWN
     Route: 048

REACTIONS (1)
  - Keratitis bacterial [Recovered/Resolved]

NARRATIVE: CASE EVENT DATE: 20210901
